FAERS Safety Report 20746213 (Version 4)
Quarter: 2022Q4

REPORT INFORMATION
  Report Type: Spontaneous
  Country: US (occurrence: US)
  Receive Date: 20220425
  Receipt Date: 20221017
  Transmission Date: 20230112
  Serious: Yes (Other)
  Sender: FDA-Public Use
  Company Number: US-PFIZER INC-202200570124

PATIENT
  Age: 78 Year
  Sex: Male

DRUGS (2)
  1. INLYTA [Suspect]
     Active Substance: AXITINIB
     Dosage: 5 MG
     Dates: start: 20220315
  2. INLYTA [Suspect]
     Active Substance: AXITINIB
     Dosage: 5 MG, 1X/DAY

REACTIONS (18)
  - Haemorrhage [Unknown]
  - Hypothyroidism [Unknown]
  - Arrhythmia [Unknown]
  - Fatigue [Unknown]
  - Gait disturbance [Unknown]
  - Arthralgia [Unknown]
  - Myalgia [Unknown]
  - Pruritus [Unknown]
  - Discomfort [Unknown]
  - Dyspnoea [Unknown]
  - Cough [Unknown]
  - Xeroderma [Unknown]
  - Incision site pain [Unknown]
  - Gait inability [Unknown]
  - Asthenia [Unknown]
  - Wheelchair user [Unknown]
  - Blood pressure fluctuation [Unknown]
  - Pain in extremity [Unknown]

NARRATIVE: CASE EVENT DATE: 20220101
